FAERS Safety Report 17558528 (Version 1)
Quarter: 2020Q1

REPORT INFORMATION
  Report Type: Spontaneous
  Country: ES (occurrence: ES)
  Receive Date: 20200318
  Receipt Date: 20200318
  Transmission Date: 20200409
  Serious: Yes (Other)
  Sender: FDA-Public Use
  Company Number: ES-ANIPHARMA-2020-ES-000036

PATIENT
  Age: 53 Year
  Sex: Female

DRUGS (6)
  1. VINORELBINE [Suspect]
     Active Substance: VINORELBINE TARTRATE
     Dosage: UNKNOWN
     Route: 065
     Dates: start: 201106, end: 201205
  2. LAPATINIB [Suspect]
     Active Substance: LAPATINIB
     Dosage: UNKNOWN
     Route: 065
  3. HERCEPTIN [Suspect]
     Active Substance: TRASTUZUMAB
     Dosage: UNKNOWN
     Route: 065
     Dates: start: 201010
  4. XELODA [Suspect]
     Active Substance: CAPECITABINE
     Dosage: UNKNOWN
     Route: 048
  5. MYOCET [Suspect]
     Active Substance: DOXORUBICIN
     Dosage: UNKNOWN
     Route: 065
  6. ANASTROZOLE. [Suspect]
     Active Substance: ANASTROZOLE
     Indication: INVASIVE DUCTAL BREAST CARCINOMA
     Dosage: UNKNOWN
     Route: 048
     Dates: start: 201010

REACTIONS (1)
  - Adenocarcinoma of colon [Unknown]
